FAERS Safety Report 10161658 (Version 1)
Quarter: 2014Q2

REPORT INFORMATION
  Report Type: Spontaneous
  Country: US (occurrence: None)
  Receive Date: 20140508
  Receipt Date: 20140508
  Transmission Date: 20141212
  Serious: Yes (Other)
  Sender: FDA-Public Use
  Company Number: None

PATIENT
  Age: 2 Year
  Sex: Female
  Weight: 19.05 kg

DRUGS (1)
  1. CEFDINIR [Suspect]
     Indication: STREPTOCOCCAL INFECTION
     Route: 048
     Dates: start: 20140417, end: 20140423

REACTIONS (5)
  - Mood altered [None]
  - Aggression [None]
  - Screaming [None]
  - Head titubation [None]
  - Decreased eye contact [None]
